FAERS Safety Report 5751600-8 (Version None)
Quarter: 2008Q2

REPORT INFORMATION
  Report Type: 
  Country: None (occurrence: None)
  Receive Date: 20080528
  Receipt Date: 20080519
  Transmission Date: 20081010
  Serious: Yes (Other)
  Sender: FDA-Public Use
  Company Number: PHHY2008BR08343

PATIENT
  Age: 81 Year
  Sex: Female
  Weight: 56 kg

DRUGS (9)
  1. COMTAN [Suspect]
     Indication: PARKINSON'S DISEASE
     Dosage: 1 TABLET/DAY
     Route: 048
     Dates: start: 20080513, end: 20080517
  2. RANITIDINE [Concomitant]
     Indication: HIATUS HERNIA
     Dosage: 2 TABLETS/DAY
     Route: 048
     Dates: start: 20040101
  3. EUTHYROX [Concomitant]
     Indication: HYPOTHYROIDISM
     Dosage: 50 MG, QD
     Dates: start: 20061101
  4. PROLOPA [Concomitant]
     Dosage: 3/4 TABLET/DAY
     Route: 048
     Dates: start: 20061101
  5. SELEGILINE HCL [Concomitant]
     Indication: PARKINSON'S DISEASE
     Dosage: 2 TABLETS/DAY
     Dates: start: 20061101
  6. ACETYLSALICYLIC ACID SRT [Concomitant]
  7. IRON POLYMALTOSE [Concomitant]
     Dosage: 100 MG, QD
     Route: 048
     Dates: start: 20070501
  8. NIFEDIPINE [Concomitant]
     Dosage: 100 MG, QD
     Route: 048
     Dates: start: 20080513
  9. NIFEDIPINE [Concomitant]
     Dosage: 100 MG, QD
     Route: 048
     Dates: start: 20080513

REACTIONS (14)
  - AGGRESSION [None]
  - BRUXISM [None]
  - DIARRHOEA [None]
  - DYSKINESIA [None]
  - EYE MOVEMENT DISORDER [None]
  - FALL [None]
  - FEELING ABNORMAL [None]
  - HEAD INJURY [None]
  - MOVEMENT DISORDER [None]
  - MUSCLE RIGIDITY [None]
  - PYREXIA [None]
  - TIC [None]
  - TREMOR [None]
  - URINE FLOW DECREASED [None]
